FAERS Safety Report 10666303 (Version 2)
Quarter: 2014Q4

REPORT INFORMATION
  Report Type: Report from Study
  Country: ES (occurrence: ES)
  Receive Date: 20141220
  Receipt Date: 20141220
  Transmission Date: 20150529
  Serious: Yes (Hospitalization)
  Sender: FDA-Public Use
  Company Number: ES-ROCHE-795750

PATIENT
  Age: 65 Year
  Sex: Female

DRUGS (24)
  1. DOXORUBICIN [Suspect]
     Active Substance: DOXORUBICIN
     Indication: DIFFUSE LARGE B-CELL LYMPHOMA
     Dosage: LAST DOSE TAKEN: 89 MG. LAST DOSE PRIOR TO ONSET OF FIRST EPISODE OF FEBRILE NETUROPENIA: 27/JUL/201
     Route: 042
     Dates: start: 20110727
  2. HYDROCORTISONE. [Concomitant]
     Active Substance: HYDROCORTISONE
     Indication: HYPERHIDROSIS
     Route: 065
     Dates: start: 20110727, end: 20110727
  3. NOVORAPID [Concomitant]
     Active Substance: INSULIN ASPART
     Indication: DIABETES MELLITUS
     Route: 065
     Dates: start: 201205
  4. CYCLOPHOSPHAMIDE. [Suspect]
     Active Substance: CYCLOPHOSPHAMIDE
     Indication: DIFFUSE LARGE B-CELL LYMPHOMA
     Dosage: LAST DOSE TAKEN: 1335 MG. LAST DOSE PRIOR TO ONSET OF FIRST EPISODE OF FEBRILE NETUROPENIA: 27/JUL/2
     Route: 042
     Dates: start: 20110727
  5. TRAMADOL HYDROCHLORIDE AND ACETAMINOPHEN [Concomitant]
     Active Substance: ACETAMINOPHEN\TRAMADOL HYDROCHLORIDE
     Indication: PAIN
     Route: 065
     Dates: end: 20111221
  6. CYCLOPHOSPHAMIDE. [Suspect]
     Active Substance: CYCLOPHOSPHAMIDE
     Dosage: DOSE REDUCED
     Route: 042
  7. DOXORUBICIN [Suspect]
     Active Substance: DOXORUBICIN
     Dosage: DOSE REDUCED
     Route: 042
  8. PARACETAMOL [Concomitant]
     Active Substance: ACETAMINOPHEN
     Indication: PREMEDICATION
     Route: 065
     Dates: start: 20110727, end: 20111221
  9. METOCLOPRAMIDE. [Concomitant]
     Active Substance: METOCLOPRAMIDE
     Indication: NAUSEA
     Route: 065
     Dates: start: 20110727, end: 201112
  10. OBINUTUZUMAB [Suspect]
     Active Substance: OBINUTUZUMAB
     Indication: DIFFUSE LARGE B-CELL LYMPHOMA
     Dosage: 250ML AT A CONCENTRATION OF 4MG/ML. LAST DOSE PRIOR TO ONSET OF FIRST EPISODE OF FEBRILE NETUROPENIA
     Route: 042
  11. RAMIPRIL. [Concomitant]
     Active Substance: RAMIPRIL
     Indication: HYPERTENSION
     Route: 065
     Dates: end: 20120516
  12. LYRICA [Concomitant]
     Active Substance: PREGABALIN
     Indication: PAIN
     Route: 065
     Dates: end: 20111221
  13. LORAZEPAM. [Concomitant]
     Active Substance: LORAZEPAM
     Indication: INSOMNIA
     Route: 065
     Dates: start: 201108, end: 20111221
  14. ACICLOVIR [Concomitant]
     Active Substance: ACYCLOVIR
     Indication: MOUTH ULCERATION
     Route: 065
     Dates: start: 20110810, end: 201108
  15. OMEPRAZOLE. [Concomitant]
     Active Substance: OMEPRAZOLE
     Indication: PROPHYLAXIS
     Route: 065
     Dates: end: 20111221
  16. CLOTRIMAZOL [Concomitant]
     Active Substance: CLOTRIMAZOLE
     Indication: VULVOVAGINAL CANDIDIASIS
     Route: 065
     Dates: start: 20110902, end: 20110907
  17. ISOPHANE INSULIN [Concomitant]
     Active Substance: INSULIN NOS
     Indication: DIABETES MELLITUS
  18. MICONAZOLE [Concomitant]
     Active Substance: MICONAZOLE
     Indication: VULVOVAGINAL CANDIDIASIS
     Route: 065
     Dates: start: 20110822, end: 20110824
  19. CEFEPIME [Concomitant]
     Active Substance: CEFEPIME\CEFEPIME HYDROCHLORIDE
     Route: 065
     Dates: start: 20110916, end: 20110919
  20. VINCRISTINE [Suspect]
     Active Substance: VINCRISTINE
     Indication: DIFFUSE LARGE B-CELL LYMPHOMA
     Dosage: LAST DOSE PRIOR TO ONSET OF FIRST EPISODE OF FEBRILE NETUROPENIA: 2MG ON 27/JUL/2011 AND SECOND EPIS
     Route: 040
     Dates: start: 20110727
  21. PREDNISOLONE. [Suspect]
     Active Substance: PREDNISOLONE
     Indication: DIFFUSE LARGE B-CELL LYMPHOMA
     Dosage: LAST DOSE TAKEN: 80 MG. LAST DOSE PRIOR TO ONSET OF FIRST EPISODE OF FEBRILE NETUROPENIA: 31/JUL/201
     Route: 042
     Dates: start: 20110727
  22. CODEROL [Concomitant]
     Indication: OSTEOARTHRITIS
     Route: 065
     Dates: end: 20130819
  23. ONDANSETRON [Concomitant]
     Active Substance: ONDANSETRON
     Indication: PREMEDICATION
     Route: 065
     Dates: start: 20110727, end: 20111109
  24. HYDROCORTISONE. [Concomitant]
     Active Substance: HYDROCORTISONE
     Indication: FLUSHING

REACTIONS (1)
  - Febrile neutropenia [Recovered/Resolved]

NARRATIVE: CASE EVENT DATE: 20110807
